FAERS Safety Report 17282536 (Version 1)
Quarter: 2020Q1

REPORT INFORMATION
  Report Type: Spontaneous
  Country: US (occurrence: US)
  Receive Date: 20200117
  Receipt Date: 20200117
  Transmission Date: 20200409
  Serious: No
  Sender: FDA-Public Use
  Company Number: US-GLAXOSMITHKLINE-US2020007734

PATIENT
  Age: 77 Year
  Sex: Female

DRUGS (1)
  1. VOLTAREN [Suspect]
     Active Substance: DICLOFENAC SODIUM
     Indication: ARTHRITIS
     Dosage: UNK (1 APPLICATION)
     Route: 065

REACTIONS (4)
  - Stomatitis [Recovering/Resolving]
  - Accidental exposure to product [Unknown]
  - Expired product administered [Unknown]
  - Cheilitis [Recovering/Resolving]

NARRATIVE: CASE EVENT DATE: 20200114
